FAERS Safety Report 24383436 (Version 1)
Quarter: 2024Q3

REPORT INFORMATION
  Report Type: Spontaneous
  Country: US (occurrence: None)
  Receive Date: 20240930
  Receipt Date: 20240930
  Transmission Date: 20241017
  Serious: No
  Sender: Public
  Company Number: None

PATIENT
  Age: 75 Year
  Sex: Female
  Weight: 52.16 kg

DRUGS (1)
  1. TERIPARATIDE [Suspect]
     Active Substance: TERIPARATIDE
     Indication: Osteoporosis
     Dosage: INJECT 20MCG SUBCUTANEOUSLY DAILY AS DIRECTED?
     Route: 058
     Dates: start: 202406

REACTIONS (2)
  - Fall [None]
  - Hip fracture [None]
